FAERS Safety Report 24732971 (Version 1)
Quarter: 2024Q4

REPORT INFORMATION
  Report Type: Spontaneous
  Country: US (occurrence: US)
  Receive Date: 20241213
  Receipt Date: 20241213
  Transmission Date: 20250114
  Serious: Yes (Death, Hospitalization, Other)
  Sender: PURDUE
  Company Number: US-PURDUE PHARMA-USA-2024-0313981

PATIENT
  Age: 75 Year
  Sex: Female

DRUGS (4)
  1. MORPHINE SULFATE [Suspect]
     Active Substance: MORPHINE SULFATE
     Indication: Pain management
     Dosage: 30 MILLIGRAM
     Route: 048
  2. MORPHINE SULFATE [Suspect]
     Active Substance: MORPHINE SULFATE
     Dosage: 60 MILLIGRAM, BID
     Route: 048
     Dates: start: 20180306
  3. MORPHINE SULFATE [Suspect]
     Active Substance: MORPHINE SULFATE
     Dosage: DAILY REGIMEN EQUALED 195 MILLIGRAMS OF MORPHINE
     Route: 048
  4. OXYCODONE HYDROCHLORIDE [Suspect]
     Active Substance: OXYCODONE HYDROCHLORIDE
     Indication: Pain management
     Dosage: UNK
     Route: 065

REACTIONS (3)
  - Acute respiratory failure [Fatal]
  - Respiratory arrest [Fatal]
  - Overdose [Fatal]

NARRATIVE: CASE EVENT DATE: 20180327
